FAERS Safety Report 7860874-9 (Version None)
Quarter: 2011Q4

REPORT INFORMATION
  Report Type: 
  Country: None (occurrence: None)
  Receive Date: 20111027
  Receipt Date: 20111021
  Transmission Date: 20120403
  Serious: Yes (Death, Life-Threatening)
  Sender: FDA-Public Use
  Company Number: PH-B.I. PHARMACEUTICALS,INC./RIDGEFIELD-2011-CS-00952RP

PATIENT
  Age: 87 Year
  Sex: Female

DRUGS (1)
  1. PRADAXA [Suspect]
     Indication: CEREBROVASCULAR ACCIDENT PROPHYLAXIS
     Dosage: 110 MG
     Route: 048
     Dates: start: 20111009, end: 20111012

REACTIONS (2)
  - HAEMATOCHEZIA [None]
  - HAEMATURIA [None]
